FAERS Safety Report 7119175-9 (Version None)
Quarter: 2010Q4

REPORT INFORMATION
  Report Type: 
  Country: None (occurrence: None)
  Receive Date: 20101123
  Receipt Date: 20101116
  Transmission Date: 20110411
  Serious: Yes (Other)
  Sender: FDA-Public Use
  Company Number: US-ROCHE-742868

PATIENT
  Sex: Male

DRUGS (1)
  1. TAMIFLU [Suspect]
     Route: 048

REACTIONS (6)
  - HALLUCINATION [None]
  - HEADACHE [None]
  - HYPOACUSIS [None]
  - MENTAL DISORDER [None]
  - VISUAL ACUITY REDUCED [None]
  - VOMITING [None]
